FAERS Safety Report 7525872-3 (Version None)
Quarter: 2011Q2

REPORT INFORMATION
  Report Type: 
  Country: None (occurrence: None)
  Receive Date: 20110606
  Receipt Date: 20110601
  Transmission Date: 20111010
  Serious: Yes (Hospitalization)
  Sender: FDA-Public Use
  Company Number: A0929870A

PATIENT
  Sex: Female

DRUGS (2)
  1. STEROIDS [Suspect]
  2. ADVAIR DISKUS 100/50 [Suspect]
     Indication: CHRONIC OBSTRUCTIVE PULMONARY DISEASE
     Route: 055
     Dates: start: 20100501

REACTIONS (4)
  - PNEUMONIA [None]
  - BRONCHITIS CHRONIC [None]
  - DIABETES MELLITUS [None]
  - HYPERCHLORHYDRIA [None]
